FAERS Safety Report 15506870 (Version 2)
Quarter: 2018Q4

REPORT INFORMATION
  Report Type: Report from Study
  Country: US (occurrence: US)
  Receive Date: 20181016
  Receipt Date: 20181109
  Transmission Date: 20190205
  Serious: Yes (Death, Other)
  Sender: FDA-Public Use
  Company Number: US-GILEAD-2018-0368574

PATIENT
  Age: 78 Year
  Sex: Female
  Weight: 52.15 kg

DRUGS (8)
  1. REVATIO [Concomitant]
     Active Substance: SILDENAFIL CITRATE
  2. AMITIZA [Concomitant]
     Active Substance: LUBIPROSTONE
  3. LINZESS [Concomitant]
     Active Substance: LINACLOTIDE
  4. AMBRISENTAN [Suspect]
     Active Substance: AMBRISENTAN
     Indication: PULMONARY HYPERTENSION
     Dosage: 5 MG, QD
     Route: 048
     Dates: start: 20110818
  5. PROTONIX [OMEPRAZOLE] [Concomitant]
  6. SENSIPAR [Concomitant]
     Active Substance: CINACALCET HYDROCHLORIDE
  7. RENVELA [Concomitant]
     Active Substance: SEVELAMER CARBONATE
  8. COUMADIN [Concomitant]
     Active Substance: WARFARIN SODIUM

REACTIONS (1)
  - Acute respiratory failure [Fatal]

NARRATIVE: CASE EVENT DATE: 20181011
